FAERS Safety Report 8198098-0 (Version None)
Quarter: 2012Q1

REPORT INFORMATION
  Report Type: 
  Country: None (occurrence: None)
  Receive Date: 20120309
  Receipt Date: 20120118
  Transmission Date: 20120608
  Serious: Yes (Other)
  Sender: FDA-Public Use
  Company Number: US-AMGEN-USASP2012003578

PATIENT
  Age: 83 Year
  Sex: Female

DRUGS (3)
  1. SENSIPAR [Suspect]
     Indication: CALCIPHYLAXIS
     Dosage: UNK
     Dates: start: 20120117
  2. SENSIPAR [Suspect]
     Indication: HYPERPARATHYROIDISM SECONDARY
  3. PROLIA [Suspect]
     Indication: PRODUCT USED FOR UNKNOWN INDICATION
     Dates: start: 20111101

REACTIONS (1)
  - BLOOD CALCIUM DECREASED [None]
